FAERS Safety Report 17305246 (Version 1)
Quarter: 2020Q1

REPORT INFORMATION
  Report Type: Spontaneous
  Country: US (occurrence: US)
  Receive Date: 20200123
  Receipt Date: 20200123
  Transmission Date: 20200409
  Serious: No
  Sender: FDA-Public Use
  Company Number: US-PFIZER INC-2020030349

PATIENT

DRUGS (1)
  1. PREMPRO [Suspect]
     Active Substance: ESTROGENS, CONJUGATED\MEDROXYPROGESTERONE ACETATE
     Dosage: UNK (ESTROGENS CONJUGATED: 0.5MG/ MEDROXYPROGESTERONE ACETATE: 1.5MG)

REACTIONS (2)
  - Malaise [Unknown]
  - Nasopharyngitis [Unknown]
